FAERS Safety Report 8611507-5 (Version None)
Quarter: 2012Q3

REPORT INFORMATION
  Report Type: 
  Country: None (occurrence: None)
  Receive Date: 20120822
  Receipt Date: 20120813
  Transmission Date: 20120928
  Serious: Yes (Hospitalization, Other)
  Sender: FDA-Public Use
  Company Number: FR-ASTRAZENECA-2012SE57794

PATIENT
  Age: 31692 Day
  Sex: Female

DRUGS (7)
  1. ZESTRIL [Concomitant]
  2. ASPIRIN [Concomitant]
  3. PREDNISONE TAB [Concomitant]
  4. CORDARONE [Concomitant]
     Route: 048
  5. AMLODIPINE BESYLATE [Concomitant]
  6. NEXIUM [Suspect]
     Route: 048
     Dates: end: 20120518
  7. BISOPROLOL FUMARATE [Concomitant]

REACTIONS (2)
  - HYPONATRAEMIA [None]
  - BRONCHITIS [None]
